FAERS Safety Report 24001589 (Version 1)
Quarter: 2024Q2

REPORT INFORMATION
  Report Type: Other
  Country: IN (occurrence: None)
  Receive Date: 20240621
  Receipt Date: 20240621
  Transmission Date: 20240716
  Serious: Yes (Life-Threatening, Hospitalization, Other)
  Sender: FDA-Public Use
  Company Number: IN-Invatech-000343

PATIENT
  Age: 37 Year
  Sex: Female

DRUGS (3)
  1. CYPROHEPTADINE [Suspect]
     Active Substance: CYPROHEPTADINE
     Indication: Serotonin syndrome
     Dosage: 2 MG QID (FOUR TIMES A DAY)
  2. FLUOXETINE [Concomitant]
     Active Substance: FLUOXETINE HYDROCHLORIDE
     Indication: Depression
  3. CYPROHEPTADINE [Suspect]
     Active Substance: CYPROHEPTADINE
     Indication: Serotonin syndrome
     Dosage: 4 MG TID (THRICE A DAY)

REACTIONS (3)
  - Condition aggravated [Recovered/Resolved]
  - Serotonin syndrome [Recovered/Resolved]
  - Sedation [Recovered/Resolved]
